FAERS Safety Report 6760005-2 (Version None)
Quarter: 2010Q2

REPORT INFORMATION
  Report Type: 
  Country: None (occurrence: None)
  Receive Date: 20100604
  Receipt Date: 20100520
  Transmission Date: 20101027
  Serious: Yes (Hospitalization)
  Sender: FDA-Public Use
  Company Number: 220006N08FRA

PATIENT
  Age: 37 Year
  Sex: Female
  Weight: 60 kg

DRUGS (13)
  1. SAIZEN [Suspect]
     Indication: GROWTH HORMONE DEFICIENCY
     Dosage: 0.1 MG, 1 IN 1 D, SUBCUTANEOUS; 0.1 MG, 1 IN 1 D, SUBCUTANEOUS, 0.1 MG, 1 IN 1 D
     Route: 058
     Dates: start: 20070820, end: 20080928
  2. SAIZEN [Suspect]
     Indication: GROWTH HORMONE DEFICIENCY
     Dosage: 0.1 MG, 1 IN 1 D, SUBCUTANEOUS; 0.1 MG, 1 IN 1 D, SUBCUTANEOUS, 0.1 MG, 1 IN 1 D
     Route: 058
     Dates: start: 20041015
  3. SAIZEN [Suspect]
     Indication: GROWTH HORMONE DEFICIENCY
     Dosage: 0.1 MG, 1 IN 1 D, SUBCUTANEOUS; 0.1 MG, 1 IN 1 D, SUBCUTANEOUS, 0.1 MG, 1 IN 1 D
     Route: 058
     Dates: start: 20090919
  4. HYDROCORTONE [Concomitant]
  5. MAGNE B6 (MAGNESIUM W/VITAMIN B6) [Concomitant]
  6. POTASSIUM CHLORIDE [Concomitant]
  7. LEXOMIL (BROMAZEPAM) [Concomitant]
  8. CITALOPRAM HYDROBROMIDE [Concomitant]
  9. AMITRIPTYLINE HCL [Concomitant]
  10. ANDROCU 50 (CYPROTERONE ACETATE) [Concomitant]
  11. ESTREVA (ESTRADIOL) [Concomitant]
  12. ATORVASTATIN CALCIUM [Concomitant]
  13. DOSTINEX 0.5 (CABERGOLINE) [Concomitant]

REACTIONS (6)
  - DEPRESSION [None]
  - DYSLIPIDAEMIA [None]
  - GASTROINTESTINAL DISORDER [None]
  - HYPERPROLACTINAEMIA [None]
  - MAGNESIUM DEFICIENCY [None]
  - MENINGIOMA BENIGN [None]
